FAERS Safety Report 15357763 (Version 4)
Quarter: 2018Q4

REPORT INFORMATION
  Report Type: Spontaneous
  Country: US (occurrence: US)
  Receive Date: 20180906
  Receipt Date: 20181009
  Transmission Date: 20190204
  Serious: No
  Sender: FDA-Public Use
  Company Number: US-ACTELION-A-NJ2018-177799

PATIENT
  Age: 61 Year
  Sex: Female

DRUGS (2)
  1. VIAGRA [Concomitant]
     Active Substance: SILDENAFIL CITRATE
  2. OPSUMIT [Suspect]
     Active Substance: MACITENTAN
     Indication: PULMONARY ARTERIAL HYPERTENSION
     Dosage: 10 MG, QD
     Route: 048

REACTIONS (11)
  - Pain [Unknown]
  - Influenza like illness [Unknown]
  - Oedema [Unknown]
  - Pain in extremity [Unknown]
  - Drug ineffective [Unknown]
  - Influenza [Unknown]
  - Peripheral swelling [Unknown]
  - Weight increased [Unknown]
  - Fluid retention [Unknown]
  - Feeling abnormal [Unknown]
  - Dyspnoea [Unknown]
